FAERS Safety Report 4762931-2 (Version None)
Quarter: 2005Q3

REPORT INFORMATION
  Report Type: 
  Country: None (occurrence: None)
  Receive Date: 20050907
  Receipt Date: 20050225
  Transmission Date: 20060218
  Serious: Yes (Hospitalization)
  Sender: FDA-Public Use
  Company Number: US-NOVOPROD-242545

PATIENT
  Age: 55 Year
  Sex: Female
  Weight: 82 kg

DRUGS (2)
  1. NOVOLOG MIX 70/30 [Suspect]
     Indication: INSULIN-REQUIRING TYPE II DIABETES MELLITUS
     Dosage: 72 IU, QD
     Route: 058
     Dates: start: 20050203, end: 20050222
  2. NOVOLOG MIX 70/30 [Suspect]
     Dosage: 68 IU, QD
     Route: 058
     Dates: start: 20050222

REACTIONS (5)
  - APHASIA [None]
  - HYPOGLYCAEMIA [None]
  - OEDEMA PERIPHERAL [None]
  - PAIN IN EXTREMITY [None]
  - TRANSIENT ISCHAEMIC ATTACK [None]
